FAERS Safety Report 4630475-4 (Version None)
Quarter: 2005Q2

REPORT INFORMATION
  Report Type: 
  Country: None (occurrence: None)
  Receive Date: 20050408
  Receipt Date: 20050329
  Transmission Date: 20051028
  Serious: Yes (Hospitalization)
  Sender: FDA-Public Use
  Company Number: JP-JNJFOC-20041205357

PATIENT
  Age: 39 Year
  Sex: Male

DRUGS (1)
  1. OFLOXACIN [Suspect]
     Route: 049
     Dates: start: 20041101, end: 20041202

REACTIONS (4)
  - DIZZINESS [None]
  - DRUG INTOLERANCE [None]
  - MYALGIA [None]
  - PARESIS [None]
